FAERS Safety Report 21285242 (Version 1)
Quarter: 2022Q3

REPORT INFORMATION
  Report Type: Other
  Country: IN (occurrence: None)
  Receive Date: 20220902
  Receipt Date: 20220902
  Transmission Date: 20221027
  Serious: Yes (Death, Hospitalization)
  Sender: FDA-Public Use
  Company Number: IN-ROCHE-3169844

PATIENT
  Sex: Male

DRUGS (1)
  1. RITUXIMAB [Suspect]
     Active Substance: RITUXIMAB
     Indication: Non-Hodgkin^s lymphoma
     Route: 065

REACTIONS (3)
  - COVID-19 [Fatal]
  - Respiratory distress [Fatal]
  - Hypotension [Fatal]
